FAERS Safety Report 10136301 (Version 1)
Quarter: 2014Q2

REPORT INFORMATION
  Report Type: Report from Study
  Country: DE (occurrence: DE)
  Receive Date: 20140429
  Receipt Date: 20140429
  Transmission Date: 20141212
  Serious: Yes (Hospitalization)
  Sender: FDA-Public Use
  Company Number: DE-009507513-1404DEU012988

PATIENT
  Age: 52 Year
  Sex: Male

DRUGS (3)
  1. BOCEPREVIR [Suspect]
     Indication: CHRONIC HEPATITIS C
     Dosage: 200 MG STRENGTH, FREQUENCY NOT REPORTED
     Route: 048
     Dates: start: 20120904
  2. CITALOPRAM [Concomitant]
     Dosage: UNK
     Route: 048
  3. CITALOPRAM [Concomitant]
     Dosage: UNK
     Dates: start: 20120906

REACTIONS (1)
  - Therapy cessation [Unknown]
